FAERS Safety Report 7369253-4 (Version None)
Quarter: 2011Q1

REPORT INFORMATION
  Report Type: 
  Country: None (occurrence: None)
  Receive Date: 20110323
  Receipt Date: 20110315
  Transmission Date: 20110831
  Serious: Yes (Death, Hospitalization)
  Sender: FDA-Public Use
  Company Number: A0814594A

PATIENT
  Age: 77 Year
  Sex: Female
  Weight: 60 kg

DRUGS (5)
  1. FERROUS SULFATE TAB [Concomitant]
  2. AVANDIA [Suspect]
     Route: 048
     Dates: end: 20070101
  3. GLYBURIDE [Concomitant]
  4. COZAAR [Concomitant]
  5. NEXIUM [Concomitant]

REACTIONS (3)
  - MYOCARDIAL INFARCTION [None]
  - CARDIAC FAILURE CONGESTIVE [None]
  - DEATH [None]
